FAERS Safety Report 8790751 (Version 1)
Quarter: 2012Q4

REPORT INFORMATION
  Report Type: Spontaneous
  Country: US (occurrence: None)
  Receive Date: 20120906
  Receipt Date: 20120906
  Transmission Date: 20130627
  Serious: Yes (Life-Threatening)
  Sender: FDA-Public Use
  Company Number: 100228-000076

PATIENT
  Age: 49 Year
  Sex: Female

DRUGS (3)
  1. PROACTIV RENEWING CLEANSER [Suspect]
     Indication: ACNE
     Dosage: Once daily dermal
     Route: 061
     Dates: start: 20100119
  2. PROACTIV REPAIRING TREATMENT [Suspect]
     Indication: ACNE
     Dosage: Once daily dermal
     Route: 002
     Dates: start: 20100119
  3. ADVAIR [Concomitant]

REACTIONS (1)
  - Dyspnoea [None]
